FAERS Safety Report 22636012 (Version 1)
Quarter: 2023Q2

REPORT INFORMATION
  Report Type: Spontaneous
  Country: SI (occurrence: SI)
  Receive Date: 20230623
  Receipt Date: 20230623
  Transmission Date: 20230721
  Serious: Yes (Other)
  Sender: FDA-Public Use
  Company Number: SI-AMGEN-SVNSP2021173369

PATIENT
  Age: 67 Year
  Sex: Female

DRUGS (4)
  1. PROLIA [Suspect]
     Active Substance: DENOSUMAB
     Indication: Osteopenia
     Dosage: 30 MILLIGRAM, Q6MO
     Route: 058
  2. PROLIA [Suspect]
     Active Substance: DENOSUMAB
     Indication: Osteoporosis
  3. VITAMIN D [Concomitant]
     Active Substance: VITAMIN D NOS
     Indication: Vitamin supplementation
     Dosage: UNK
  4. CALCIUM [Concomitant]
     Active Substance: CALCIUM
     Indication: Mineral supplementation
     Dosage: UNK

REACTIONS (11)
  - Haemorrhage [Unknown]
  - Hypothyroidism [Unknown]
  - Oral herpes [Recovered/Resolved]
  - Periodontitis [Unknown]
  - Alveolar bone resorption [Unknown]
  - Oropharyngeal plaque [Unknown]
  - Noninfective gingivitis [Unknown]
  - Tooth extraction [Unknown]
  - Hypertension [Unknown]
  - Mucosal pain [Unknown]
  - Tooth malformation [Unknown]

NARRATIVE: CASE EVENT DATE: 20220101
